FAERS Safety Report 5065515-4 (Version None)
Quarter: 2006Q3

REPORT INFORMATION
  Report Type: 
  Country: None (occurrence: None)
  Receive Date: 20060725
  Receipt Date: 20060712
  Transmission Date: 20061208
  Serious: Yes (Other)
  Sender: FDA-Public Use
  Company Number: 2006087666

PATIENT

DRUGS (3)
  1. MEDROL [Suspect]
     Indication: DRUG USE FOR UNKNOWN INDICATION
     Dosage: 64 MG (32 MG, 2 IN 1 D), ORAL
     Route: 048
  2. REPARIL (ESCIN) [Concomitant]
  3. BEFACT FORTE (CYANOCOBALAMIN, PYRIDOXINE HYDROCHLORIDE, RIBOFLAVIN, TH [Concomitant]

REACTIONS (1)
  - HEPATOTOXICITY [None]
